FAERS Safety Report 7941241-6 (Version None)
Quarter: 2011Q4

REPORT INFORMATION
  Report Type: 
  Country: None (occurrence: None)
  Receive Date: 20111122
  Receipt Date: 20111122
  Transmission Date: 20120403
  Serious: Yes (Other)
  Sender: FDA-Public Use
  Company Number: None

PATIENT
  Age: 67 Year
  Sex: Female
  Weight: 88.4 kg

DRUGS (2)
  1. DOCETAXEL (TAXOTERE) [Suspect]
     Indication: BREAST CANCER
     Dosage: 150 MG EVERY TWO WEEKS IV
     Route: 042
     Dates: start: 20111021
  2. CYCLOPHOSPHAMIDE [Suspect]
     Indication: BREAST CANCER
     Dosage: 1,200MG EVERY 2 WEEKS IV 30-60 MINUTE IV
     Route: 042
     Dates: start: 20111021

REACTIONS (2)
  - SYNCOPE [None]
  - HEAD INJURY [None]
